FAERS Safety Report 7002747-X (Version None)
Quarter: 2010Q3

REPORT INFORMATION
  Report Type: 
  Country: None (occurrence: None)
  Receive Date: 20100920
  Receipt Date: 20100908
  Transmission Date: 20110219
  Serious: Yes (Hospitalization)
  Sender: FDA-Public Use
  Company Number: JP-AMGEN-QUU436661

PATIENT
  Age: 75 Year
  Sex: Female

DRUGS (2)
  1. ENBREL [Suspect]
     Indication: RHEUMATOID ARTHRITIS
     Dosage: UNSPECIFIED
     Route: 058
     Dates: start: 20080101, end: 20090301
  2. ENBREL [Suspect]
     Dosage: UNSPECIFIED
     Route: 058
     Dates: start: 20090301, end: 20090901

REACTIONS (1)
  - INTERSTITIAL LUNG DISEASE [None]
